FAERS Safety Report 8764653 (Version 1)
Quarter: 2012Q4

REPORT INFORMATION
  Report Type: 
  Country: BR (occurrence: BR)
  Receive Date: 20120831
  Receipt Date: 20120831
  Transmission Date: 20130627
  Serious: Yes (Death, Other)
  Sender: FDA-Public Use
  Company Number: BR-PFIZER INC-2012211037

PATIENT
  Age: 70 Year
  Sex: Male

DRUGS (1)
  1. DETRUSITOL LA [Suspect]
     Dosage: 4 mg, 1x/day
     Route: 048
     Dates: start: 2009

REACTIONS (2)
  - Respiratory arrest [Fatal]
  - Lung disorder [Unknown]
